FAERS Safety Report 17258686 (Version 3)
Quarter: 2020Q1

REPORT INFORMATION
  Report Type: Report from Study
  Country: None (occurrence: TR)
  Receive Date: 20200110
  Receipt Date: 20200129
  Transmission Date: 20200409
  Serious: Yes (Death)
  Sender: FDA-Public Use
  Company Number: TR-ABBVIE-20K-161-3228032-00

PATIENT
  Age: 59 Year
  Sex: Female
  Weight: 65 kg

DRUGS (4)
  1. DUXET [Concomitant]
     Indication: PARKINSON^S DISEASE
     Route: 048
     Dates: start: 2013
  2. NEURONTIN [Concomitant]
     Active Substance: GABAPENTIN
     Indication: ANALGESIC THERAPY
     Route: 048
     Dates: start: 2013
  3. PK MERZ [Concomitant]
     Active Substance: AMANTADINE SULFATE
     Indication: PARKINSON^S DISEASE
     Route: 048
     Dates: start: 2013
  4. LEVODOPA/CARBIDOPA [Suspect]
     Active Substance: CARBIDOPA\LEVODOPA
     Indication: PARKINSON^S DISEASE
     Dosage: MD(ML):7.00 CD(ML):3.50 ED(ML):2.00?20 MG/ML 5 MG/ML
     Route: 050

REACTIONS (1)
  - Death [Fatal]

NARRATIVE: CASE EVENT DATE: 20200108
